FAERS Safety Report 9027150 (Version 1)
Quarter: 2013Q1

REPORT INFORMATION
  Report Type: Spontaneous
  Country: US (occurrence: US)
  Receive Date: 20130123
  Receipt Date: 20130123
  Transmission Date: 20140127
  Serious: Yes (Hospitalization)
  Sender: FDA-Public Use
  Company Number: US-INCYTE CORPORATION-2012IN002682

PATIENT
  Age: 91 None
  Sex: Male
  Weight: 78.46 kg

DRUGS (4)
  1. JAKAFI [Suspect]
     Indication: MYELOFIBROSIS
     Dosage: 20 MG, BID
     Route: 048
     Dates: start: 20121010, end: 20121114
  2. JAKAFI [Suspect]
     Dosage: 10 MG, BID
     Route: 048
     Dates: start: 2012
  3. JAKAFI [Suspect]
     Dosage: 20 MG, BID
     Route: 048
  4. HYDREA [Concomitant]

REACTIONS (4)
  - Angina pectoris [Recovered/Resolved]
  - Splenomegaly [Unknown]
  - Thrombocytopenia [Unknown]
  - Haematocrit decreased [Unknown]
